FAERS Safety Report 5598891-4 (Version None)
Quarter: 2008Q1

REPORT INFORMATION
  Report Type: 
  Country: None (occurrence: None)
  Receive Date: 20080122
  Receipt Date: 20080117
  Transmission Date: 20080703
  Serious: Yes (Hospitalization, Other)
  Sender: FDA-Public Use
  Company Number: GB-RANBAXY-2008RR-12695

PATIENT

DRUGS (5)
  1. ZOCOR [Suspect]
     Dosage: 40 MG, UNK
     Route: 048
     Dates: start: 20071112
  2. AZATHIOPRINE [Concomitant]
     Indication: ECZEMA
     Dosage: 50 MG, UNK
     Route: 065
     Dates: start: 20060210
  3. CO-CODAMOL [Concomitant]
     Indication: ARTHRALGIA
     Dosage: UNK
     Route: 065
     Dates: start: 20071101
  4. RAMIPRIL [Concomitant]
     Indication: HYPERTENSION
     Dosage: 1.25 MG, UNK
     Route: 065
     Dates: start: 20010425
  5. WARFARIN SODIUM [Concomitant]
     Dosage: 1 MG, UNK
     Route: 065
     Dates: start: 20010430

REACTIONS (1)
  - URINARY RETENTION [None]
